FAERS Safety Report 9762721 (Version 2)
Quarter: 2013Q4

REPORT INFORMATION
  Report Type: Spontaneous
  Country: US (occurrence: US)
  Receive Date: 20131216
  Receipt Date: 20131216
  Transmission Date: 20140711
  Serious: Yes (Other)
  Sender: FDA-Public Use
  Company Number: PHEH2013US019289

PATIENT
  Sex: Female

DRUGS (3)
  1. VALSARTAN [Suspect]
     Dosage: UNK UKN, UNK
     Dates: start: 201211
  2. METFORMIN [Concomitant]
     Dosage: UNK UKN, UNK
  3. SIMVASTATIN [Concomitant]
     Dosage: UNK UKN, UNK

REACTIONS (6)
  - Blood pressure increased [Recovered/Resolved]
  - Nervous system disorder [Not Recovered/Not Resolved]
  - Swelling [Not Recovered/Not Resolved]
  - Muscle spasms [Not Recovered/Not Resolved]
  - Flushing [Recovered/Resolved]
  - Nervousness [Recovered/Resolved]
